FAERS Safety Report 26039965 (Version 3)
Quarter: 2025Q4

REPORT INFORMATION
  Report Type: Report from Study
  Country: EG (occurrence: EG)
  Receive Date: 20251113
  Receipt Date: 20251231
  Transmission Date: 20260117
  Serious: Yes (Life-Threatening, Hospitalization, Other)
  Sender: NOVARTIS
  Company Number: EG-002147023-NVSC2025EG171705

PATIENT
  Age: 47 Year
  Sex: Male
  Weight: 118 kg

DRUGS (5)
  1. ENTRESTO [Suspect]
     Active Substance: SACUBITRIL\VALSARTAN
     Indication: Cardiac failure
     Dosage: 50 MG, BID (STOP DATE: AFTER THREE MONTHS FROM THE START DATE)  (STRENGTH: 50 MG)
     Route: 048
     Dates: start: 20221221
  2. ENTRESTO [Suspect]
     Active Substance: SACUBITRIL\VALSARTAN
     Dosage: 100 MG, BID (START DATE: AFTER THREE MONTHS FROM THE START DATE OF ENTRESTO 50MG (21-DEC-2022))
     Route: 048
     Dates: end: 20250626
  3. ENTRESTO [Suspect]
     Active Substance: SACUBITRIL\VALSARTAN
     Dosage: 100 MG, BID (STRENGTH: 100 MG)
     Route: 048
     Dates: start: 20250627
  4. ENTRESTO [Suspect]
     Active Substance: SACUBITRIL\VALSARTAN
     Dosage: 200 MG, BID (STRENGTH: 200 MG)
     Route: 048
  5. METOPROLOL TARTRATE [Concomitant]
     Active Substance: METOPROLOL TARTRATE
     Indication: Product used for unknown indication
     Dosage: UNK
     Route: 048

REACTIONS (6)
  - Hypotension [Recovered/Resolved]
  - Extrasystoles [Recovered/Resolved]
  - Ventricular extrasystoles [Unknown]
  - Allergic sinusitis [Unknown]
  - Ejection fraction decreased [Recovering/Resolving]
  - Dizziness [Recovered/Resolved]

NARRATIVE: CASE EVENT DATE: 20250101
